FAERS Safety Report 15803008 (Version 3)
Quarter: 2019Q2

REPORT INFORMATION
  Report Type: Spontaneous
  Country: TW (occurrence: TW)
  Receive Date: 20190109
  Receipt Date: 20190503
  Transmission Date: 20190711
  Serious: Yes (Other)
  Sender: FDA-Public Use
  Company Number: TW-PFIZER INC-2018190999

PATIENT
  Age: 48 Year
  Sex: Female

DRUGS (5)
  1. SUTENT [Suspect]
     Active Substance: SUNITINIB MALATE
     Dosage: 25 MG, 1X/DAY (QD) (12.5 MG, 2 DOSE FORMS PER DAY)
     Route: 048
     Dates: start: 20180605, end: 2018
  2. SUTENT [Suspect]
     Active Substance: SUNITINIB MALATE
     Dosage: 25 MG, 1X/DAY (QD)
     Route: 048
     Dates: start: 20180807
  3. SUTENT [Suspect]
     Active Substance: SUNITINIB MALATE
     Dosage: 37.5 MG, 1X/DAY ((12.5 MG) 3#/QD)
     Route: 048
     Dates: start: 20180703, end: 2018
  4. SUTENT [Suspect]
     Active Substance: SUNITINIB MALATE
     Indication: RENAL CELL CARCINOMA
     Dosage: 37.5 MG, 1X/DAY (QD)
     Dates: start: 20180424, end: 20180604
  5. SUTENT [Suspect]
     Active Substance: SUNITINIB MALATE
     Dosage: 12.5 MG, ALTERNATE DAY (12.5MG, ALTERNATE USE)
     Route: 048
     Dates: start: 2018, end: 2018

REACTIONS (20)
  - Regurgitation [Recovering/Resolving]
  - Malnutrition [Unknown]
  - Glossodynia [Recovering/Resolving]
  - Blood pressure increased [Recovering/Resolving]
  - Mouth ulceration [Recovering/Resolving]
  - Palmar-plantar erythrodysaesthesia syndrome [Recovering/Resolving]
  - Haematuria [Recovered/Resolved]
  - Periorbital oedema [Recovering/Resolving]
  - Decreased appetite [Recovered/Resolved]
  - Ascites [Recovered/Resolved]
  - Constipation [Recovered/Resolved]
  - Eructation [Recovering/Resolving]
  - Nausea [Recovered/Resolved]
  - Platelet count decreased [Recovering/Resolving]
  - Face oedema [Recovering/Resolving]
  - Hypogeusia [Recovering/Resolving]
  - Blister [Recovered/Resolved]
  - Abdominal distension [Recovering/Resolving]
  - Fatigue [Recovering/Resolving]
  - Vomiting [Recovered/Resolved]

NARRATIVE: CASE EVENT DATE: 2018
